FAERS Safety Report 16872829 (Version 2)
Quarter: 2025Q3

REPORT INFORMATION
  Report Type: Spontaneous
  Country: GB (occurrence: GB)
  Receive Date: 20191001
  Receipt Date: 20250707
  Transmission Date: 20251021
  Serious: Yes (Other)
  Sender: AUROBINDO
  Company Number: GB-AUROBINDO-AUR-APL-2019-063726

PATIENT
  Age: 28 Year
  Sex: Male
  Weight: 87.7 kg

DRUGS (2)
  1. LINEZOLID [Suspect]
     Active Substance: LINEZOLID
     Indication: Staphylococcal skin infection
     Dosage: 600 MILLIGRAM, 3 TIMES A DAY
     Route: 048
  2. LIRAGLUTIDE [Concomitant]
     Active Substance: LIRAGLUTIDE
     Indication: Obesity
     Dosage: 3 MILLIGRAM, ONCE A DAY
     Route: 065

REACTIONS (5)
  - Myelosuppression [Unknown]
  - Off label use [Unknown]
  - Oropharyngeal pain [Unknown]
  - Nausea [Unknown]
  - Rhinitis [Unknown]

NARRATIVE: CASE EVENT DATE: 20180201
